FAERS Safety Report 25264680 (Version 1)
Quarter: 2025Q2

REPORT INFORMATION
  Report Type: Spontaneous
  Country: US (occurrence: US)
  Receive Date: 20250502
  Receipt Date: 20250502
  Transmission Date: 20250717
  Serious: Yes (Other)
  Sender: PFIZER
  Company Number: US-PFIZER INC-202500091499

PATIENT
  Age: 51 Year
  Sex: Female

DRUGS (12)
  1. IBRANCE [Suspect]
     Active Substance: PALBOCICLIB
     Route: 048
     Dates: start: 20210303
  2. CYCLOBENZAPRINE [Concomitant]
     Active Substance: CYCLOBENZAPRINE
  3. FERROUS SULFATE [Concomitant]
     Active Substance: FERROUS SULFATE
  4. HYDROCODONE BITARTRATE AND ACETAMINOPHEN [Concomitant]
     Active Substance: ACETAMINOPHEN\HYDROCODONE BITARTRATE
  5. LETROZOLE [Concomitant]
     Active Substance: LETROZOLE
  6. LORAZEPAM [Concomitant]
     Active Substance: LORAZEPAM
  7. METHYLPREDNISOLONE [Concomitant]
     Active Substance: METHYLPREDNISOLONE
  8. MORPHINE SULFATE [Concomitant]
     Active Substance: MORPHINE SULFATE
  9. OMEPRAZOLE [Concomitant]
     Active Substance: OMEPRAZOLE
  10. POTASSIUM CHLORIDE EXTENDED RELEASE [Concomitant]
     Active Substance: POTASSIUM CHLORIDE
  11. PREDNISONE [Concomitant]
     Active Substance: PREDNISONE
  12. PROCHLORPERAZINE MALEATE [Concomitant]
     Active Substance: PROCHLORPERAZINE MALEATE

REACTIONS (8)
  - Malignant neoplasm progression [Unknown]
  - Weight decreased [Unknown]
  - Stomatitis [Unknown]
  - Skin lesion [Unknown]
  - Cheilitis [Unknown]
  - Hot flush [Unknown]
  - Vomiting [Unknown]
  - Anaemia of malignant disease [Unknown]
